FAERS Safety Report 10553433 (Version 1)
Quarter: 2014Q4

REPORT INFORMATION
  Report Type: Spontaneous
  Country: US (occurrence: None)
  Receive Date: 20141028
  Receipt Date: 20141028
  Transmission Date: 20150529
  Serious: Yes (Hospitalization)
  Sender: FDA-Public Use
  Company Number: None

PATIENT
  Age: 66 Year
  Sex: Male
  Weight: 90.4 kg

DRUGS (2)
  1. FUROSEMIDE. [Suspect]
     Active Substance: FUROSEMIDE
     Indication: CARDIAC FAILURE CONGESTIVE
     Route: 042
     Dates: start: 20141024, end: 20141024
  2. FUROSEMIDE. [Suspect]
     Active Substance: FUROSEMIDE
     Indication: HYPERTENSION
     Route: 042
     Dates: start: 20141024, end: 20141024

REACTIONS (6)
  - Unresponsive to stimuli [None]
  - Burning sensation [None]
  - Discomfort [None]
  - Tremor [None]
  - Cardio-respiratory arrest [None]
  - Headache [None]

NARRATIVE: CASE EVENT DATE: 20141024
